FAERS Safety Report 5376778-X (Version None)
Quarter: 2007Q3

REPORT INFORMATION
  Report Type: 
  Country: None (occurrence: None)
  Receive Date: 20070703
  Receipt Date: 20070628
  Transmission Date: 20080115
  Serious: Yes (Other)
  Sender: FDA-Public Use
  Company Number: JP-AVENTIS-200711709JP

PATIENT
  Age: 38 Year
  Sex: Female
  Weight: 48.5 kg

DRUGS (14)
  1. ARAVA [Suspect]
     Indication: RHEUMATOID ARTHRITIS
     Route: 048
     Dates: start: 20061017, end: 20061023
  2. ARAVA [Suspect]
     Route: 048
     Dates: start: 20061106, end: 20061207
  3. ARAVA [Suspect]
     Route: 048
     Dates: start: 20061212, end: 20070131
  4. ARAVA [Suspect]
     Route: 048
     Dates: start: 20070212
  5. METHOTREXATE [Concomitant]
     Dosage: DOSE: 6 MG/WEEK
     Route: 048
  6. METHOTREXATE [Concomitant]
     Dosage: DOSE: 4 MG/WEEK
     Route: 048
     Dates: start: 20070212
  7. PREDNISOLONE [Concomitant]
     Dosage: DOSE: 4 MG/WEEK
     Route: 048
     Dates: end: 20070227
  8. PREDNISOLONE [Concomitant]
     Dosage: DOSE: 6 MG/WEEK
     Route: 048
     Dates: start: 20070228
  9. OZEX                               /01070602/ [Concomitant]
     Route: 048
     Dates: start: 20061017, end: 20061020
  10. OZEX                               /01070602/ [Concomitant]
     Route: 048
     Dates: start: 20061030, end: 20061104
  11. OZEX                               /01070602/ [Concomitant]
     Route: 048
     Dates: start: 20061114, end: 20061121
  12. OZEX                               /01070602/ [Concomitant]
     Route: 048
     Dates: start: 20061212, end: 20061219
  13. OZEX                               /01070602/ [Concomitant]
     Route: 048
     Dates: start: 20061225, end: 20070102
  14. DECACORT [Concomitant]
     Route: 042
     Dates: start: 20061017, end: 20061017

REACTIONS (3)
  - ALANINE AMINOTRANSFERASE INCREASED [None]
  - ASPARTATE AMINOTRANSFERASE INCREASED [None]
  - UPPER RESPIRATORY TRACT INFECTION [None]
